FAERS Safety Report 19452128 (Version 2)
Quarter: 2021Q3

REPORT INFORMATION
  Report Type: Spontaneous
  Country: BR (occurrence: BR)
  Receive Date: 20210623
  Receipt Date: 20210706
  Transmission Date: 20211014
  Serious: Yes (Other)
  Sender: FDA-Public Use
  Company Number: NVSC2021BR138777

PATIENT
  Sex: Male
  Weight: 85 kg

DRUGS (7)
  1. TEGRETOL [Suspect]
     Active Substance: CARBAMAZEPINE
     Indication: SEIZURE
     Dosage: 10 ML, QD
     Route: 065
  2. TEGRETOL [Suspect]
     Active Substance: CARBAMAZEPINE
     Dosage: 10 ML, QD (IN THE AFTERNOON)
     Route: 048
     Dates: end: 202106
  3. RIVOTRIL [Concomitant]
     Active Substance: CLONAZEPAM
     Indication: SLEEP DISORDER
     Dosage: 30 DRP, QD SOLUTION (SINCE 15 YEARS OLD)
     Route: 048
     Dates: start: 1990
  4. NEULEPTIL [Concomitant]
     Active Substance: PERICIAZINE
     Indication: ABNORMAL BEHAVIOUR
  5. NEULEPTIL [Concomitant]
     Active Substance: PERICIAZINE
     Indication: AGITATION
     Dosage: 10 DRP, QD SOLUTION (SINCE 15 YEARS OLD)
     Route: 048
     Dates: start: 1994
  6. TEGRETOL [Suspect]
     Active Substance: CARBAMAZEPINE
     Dosage: 10 ML, QD (AT NIGHT)
     Route: 048
  7. TEGRETOL [Suspect]
     Active Substance: CARBAMAZEPINE
     Dosage: 5 ML, QD (IN THE AFTERNOON)
     Route: 048
     Dates: start: 202106

REACTIONS (1)
  - Seizure [Recovered/Resolved]
